FAERS Safety Report 6223722-9 (Version None)
Quarter: 2009Q2

REPORT INFORMATION
  Report Type: 
  Country: None (occurrence: None)
  Receive Date: 20090611
  Receipt Date: 20090303
  Transmission Date: 20091009
  Serious: No
  Sender: FDA-Public Use
  Company Number: PR-ABBOTT-09P-131-0560335-00

PATIENT
  Sex: Female
  Weight: 95.34 kg

DRUGS (9)
  1. HUMIRA [Suspect]
     Indication: RHEUMATOID ARTHRITIS
     Route: 058
     Dates: start: 20081028
  2. PROCARDIA XL [Concomitant]
     Indication: HYPERTENSION
     Route: 048
  3. LASIX [Concomitant]
     Indication: HYPERTENSION
     Route: 048
  4. ENALAPRIL [Concomitant]
     Indication: HYPERTENSION
     Route: 048
  5. EVISTA [Concomitant]
     Indication: NEOPLASM MALIGNANT
     Route: 048
  6. EVISTA [Concomitant]
     Indication: PROPHYLAXIS
  7. FOLIC ACID [Concomitant]
     Indication: RHEUMATOID ARTHRITIS
     Route: 048
  8. METHOTREXATE [Concomitant]
     Indication: RHEUMATOID ARTHRITIS
     Route: 048
  9. PRILOSEC [Concomitant]
     Indication: GASTRITIS
     Route: 048

REACTIONS (4)
  - INJECTION SITE DISCOLOURATION [None]
  - INJECTION SITE ERYTHEMA [None]
  - INJECTION SITE HAEMATOMA [None]
  - INJECTION SITE PRURITUS [None]
